FAERS Safety Report 7113748-5 (Version None)
Quarter: 2010Q4

REPORT INFORMATION
  Report Type: 
  Country: None (occurrence: None)
  Receive Date: 20101119
  Receipt Date: 20101119
  Transmission Date: 20110411
  Serious: Yes (Hospitalization)
  Sender: FDA-Public Use
  Company Number: US-PFIZER INC-2007034729

PATIENT
  Sex: Male
  Weight: 94 kg

DRUGS (12)
  1. SUNITINIB MALATE [Suspect]
     Indication: RENAL CANCER METASTATIC
     Dosage: 50 MG, 1X/DAY
     Dates: start: 20051108, end: 20060522
  2. SUNITINIB MALATE [Suspect]
     Dosage: 37.5 MG, 1X/DAY
     Route: 048
     Dates: start: 20070103, end: 20070424
  3. LOVENOX [Suspect]
     Route: 058
     Dates: start: 20070329, end: 20070430
  4. HYTRIN [Concomitant]
     Route: 048
     Dates: start: 20050701, end: 20070430
  5. BENZONATATE [Concomitant]
     Route: 048
     Dates: start: 20051031
  6. COMPAZINE [Concomitant]
     Route: 048
     Dates: start: 20051108, end: 20070430
  7. HYCODAN [Concomitant]
     Route: 048
     Dates: start: 20051121
  8. SYNTHROID [Concomitant]
     Route: 048
     Dates: start: 20051214
  9. BIAFINE [Concomitant]
     Route: 061
     Dates: start: 20060112, end: 20070430
  10. BENICAR [Concomitant]
     Route: 048
     Dates: start: 20070423, end: 20070430
  11. FUROSEMIDE [Concomitant]
     Route: 048
     Dates: start: 20060622
  12. METOPROLOL [Concomitant]
     Route: 048
     Dates: start: 20070428, end: 20070430

REACTIONS (3)
  - ARRHYTHMIA SUPRAVENTRICULAR [None]
  - DYSPNOEA [None]
  - HAEMOTHORAX [None]
